FAERS Safety Report 17560563 (Version 2)
Quarter: 2020Q1

REPORT INFORMATION
  Report Type: Spontaneous
  Country: TW (occurrence: TW)
  Receive Date: 20200319
  Receipt Date: 20200324
  Transmission Date: 20200409
  Serious: No
  Sender: FDA-Public Use
  Company Number: TW-PFIZER INC-2020111004

PATIENT
  Age: 57 Year
  Sex: Male
  Weight: 63 kg

DRUGS (3)
  1. CEFTAZIDIME. [Suspect]
     Active Substance: CEFTAZIDIME
     Indication: LEMIERRE SYNDROME
     Dosage: 1000 MG, 2X/DAY(EVERY 12 HRS)
     Route: 041
     Dates: start: 20190414, end: 20190421
  2. CEFTAZIDIME. [Suspect]
     Active Substance: CEFTAZIDIME
     Dosage: 2000 MG, 3X/DAY( EVERY 8 HRS)
     Route: 041
     Dates: start: 20190422, end: 20190427
  3. METRONIDAZOLE. [Suspect]
     Active Substance: METRONIDAZOLE
     Indication: LEMIERRE SYNDROME
     Dosage: 500 MG, 3X/DAY (EVERY 8 HRS)
     Route: 041
     Dates: start: 20190418, end: 20190427

REACTIONS (2)
  - Headache [Recovered/Resolved]
  - Dizziness [Recovered/Resolved]

NARRATIVE: CASE EVENT DATE: 20190426
